FAERS Safety Report 8471153 (Version 3)
Quarter: 2012Q4

REPORT INFORMATION
  Report Type: 
  Country: US (occurrence: US)
  Receive Date: 20120322
  Receipt Date: 20121109
  Transmission Date: 20130627
  Serious: Yes (Hospitalization, Other)
  Sender: FDA-Public Use
  Company Number: US-BAYER-2012-025723

PATIENT
  Age: 35 Year
  Sex: Female
  Weight: 153 kg

DRUGS (10)
  1. YAZ [Suspect]
     Indication: CONTRACEPTION
     Dosage: UNK
     Dates: start: 2005, end: 200903
  2. YASMIN [Suspect]
     Indication: CONTRACEPTION
     Dosage: UNK
     Dates: start: 2005, end: 200903
  3. VITAMIN D [Concomitant]
     Dosage: 50000 iu, OW
     Route: 048
  4. SYNTHROID [Concomitant]
  5. PHENTERMINE [Concomitant]
     Dosage: 37.5 mg, QD
  6. TOPIRAMATE [Concomitant]
     Dosage: 50 mg, BID
     Route: 048
  7. WELLBUTRIN XL [Concomitant]
     Dosage: 150 mg, QD
     Route: 048
  8. VITAMIN B [Concomitant]
  9. VITAMIN C [Concomitant]
     Indication: VITAMIN C DEFICIENCY
     Dosage: 500 QD
  10. CRANBERRY [Concomitant]
     Indication: URINARY TRACT INFECTION NOS
     Dosage: QD

REACTIONS (15)
  - Peripheral artery thrombosis [None]
  - Subclavian artery thrombosis [None]
  - Arterial thrombosis [None]
  - Peripheral artery thrombosis [None]
  - Deep vein thrombosis [Recovered/Resolved]
  - Injury [None]
  - Pain [None]
  - Pain [None]
  - Emotional distress [None]
  - General physical health deterioration [Recovered/Resolved]
  - Anxiety [None]
  - Poor peripheral circulation [None]
  - Pain in extremity [None]
  - Hypoaesthesia [None]
  - Neuropathy peripheral [None]
